FAERS Safety Report 8024163-4 (Version None)
Quarter: 2012Q1

REPORT INFORMATION
  Report Type: 
  Country: None (occurrence: None)
  Receive Date: 20120105
  Receipt Date: 20120103
  Transmission Date: 20120608
  Serious: Yes (Other)
  Sender: FDA-Public Use
  Company Number: FI-PFIZER INC-2011310029

PATIENT
  Age: 14 Year
  Sex: Male
  Weight: 75 kg

DRUGS (5)
  1. CELECOXIB [Suspect]
     Dosage: 100 MG DAILY
  2. CELECOXIB [Suspect]
     Dosage: 400MG X 2 (430 MG/M2)
     Route: 048
  3. ETOPOSIDE [Suspect]
     Dosage: 11.5 G/M2, GIVEN OVER A 31-MONTH PERIOD
  4. CELECOXIB [Suspect]
     Dosage: 230 MG/M2
  5. ETOPOSIDE [Suspect]
     Dosage: 100 MG (50MG/M2)
     Route: 048

REACTIONS (1)
  - NEUTROPENIA [None]
